FAERS Safety Report 5207322-5 (Version None)
Quarter: 2007Q1

REPORT INFORMATION
  Report Type: 
  Country: None (occurrence: None)
  Receive Date: 20070110
  Receipt Date: 20061225
  Transmission Date: 20070707
  Serious: Yes (Hospitalization)
  Sender: FDA-Public Use
  Company Number: 2006JP005479

PATIENT
  Age: 16 Year
  Sex: Female

DRUGS (2)
  1. PROGRAF [Suspect]
     Indication: DRUG USE FOR UNKNOWN INDICATION
     Dosage: 1 MG, ORAL
     Route: 048
  2. NEORAL [Concomitant]

REACTIONS (1)
  - HYPERAESTHESIA [None]
